FAERS Safety Report 9333822 (Version 1)
Quarter: 2013Q2

REPORT INFORMATION
  Report Type: Spontaneous
  Country: US (occurrence: US)
  Receive Date: 20130606
  Receipt Date: 20130606
  Transmission Date: 20140414
  Serious: No
  Sender: FDA-Public Use
  Company Number: US-AMGEN-USASP2013002468

PATIENT
  Age: 66 Year
  Sex: Female
  Weight: 125 kg

DRUGS (5)
  1. PROLIA [Suspect]
     Indication: OSTEOPOROSIS
     Dosage: 60 MG, ONE TIME DOSE
     Route: 030
     Dates: start: 20120312
  2. ADVIL                              /00044201/ [Concomitant]
     Dosage: 200 MG, UNK
     Route: 048
  3. LIBRAX                             /00033301/ [Concomitant]
     Dosage: 5-25MG, UNK
     Route: 048
  4. PEPCID                             /00706001/ [Concomitant]
     Dosage: 40 MG, UNK
     Route: 048
  5. VITAMIN D3 [Concomitant]
     Dosage: 1000 UNK, UNK
     Route: 048

REACTIONS (11)
  - Ear discomfort [Not Recovered/Not Resolved]
  - Feeling hot [Unknown]
  - Tremor [Unknown]
  - Gastrointestinal disorder [Unknown]
  - Spinal pain [Unknown]
  - Injected limb mobility decreased [Unknown]
  - Arthralgia [Not Recovered/Not Resolved]
  - Dyspepsia [Not Recovered/Not Resolved]
  - Musculoskeletal pain [Not Recovered/Not Resolved]
  - Vertigo [Not Recovered/Not Resolved]
  - Back pain [Unknown]
